FAERS Safety Report 5613856-1 (Version None)
Quarter: 2008Q1

REPORT INFORMATION
  Report Type: 
  Country: None (occurrence: None)
  Receive Date: 20080205
  Receipt Date: 20080131
  Transmission Date: 20080703
  Serious: Yes (Life-Threatening, Hospitalization)
  Sender: FDA-Public Use
  Company Number: JP-ABBOTT-07P-087-0426996-00

PATIENT
  Sex: Male

DRUGS (5)
  1. KLARICID TABLETS [Suspect]
     Indication: NASOPHARYNGITIS
     Route: 048
     Dates: start: 20071020, end: 20071021
  2. DICLOFENAC SODIUM [Suspect]
     Indication: NASOPHARYNGITIS
     Route: 048
     Dates: start: 20071019, end: 20071021
  3. PARACETAMOL [Suspect]
     Indication: NASOPHARYNGITIS
     Route: 048
     Dates: start: 20071019, end: 20071021
  4. FEXOFENADINE [Suspect]
     Indication: NASOPHARYNGITIS
     Route: 048
     Dates: start: 20071020, end: 20071021
  5. NOT REPORTED MEDICATION [Concomitant]
     Indication: DRUG USE FOR UNKNOWN INDICATION
     Route: 048

REACTIONS (7)
  - ALANINE AMINOTRANSFERASE INCREASED [None]
  - ASPARTATE AMINOTRANSFERASE INCREASED [None]
  - BLOOD BILIRUBIN INCREASED [None]
  - ENCEPHALOPATHY [None]
  - HEPATIC FUNCTION ABNORMAL [None]
  - HEPATITIS [None]
  - JAUNDICE [None]
